FAERS Safety Report 12089122 (Version 1)
Quarter: 2016Q1

REPORT INFORMATION
  Report Type: Spontaneous
  Country: US (occurrence: None)
  Receive Date: 20160217
  Receipt Date: 20160217
  Transmission Date: 20160526
  Serious: Yes (Hospitalization, Disabling, Other)
  Sender: FDA-Public Use
  Company Number: None

PATIENT
  Age: 81 Year
  Sex: Female
  Weight: 64.41 kg

DRUGS (15)
  1. PREVACID [Concomitant]
     Active Substance: LANSOPRAZOLE
  2. VITAMIN B12 [Concomitant]
     Active Substance: CYANOCOBALAMIN
  3. SINGULAIR [Concomitant]
     Active Substance: MONTELUKAST SODIUM
  4. LOW DOSE ASPIRIN [Concomitant]
     Active Substance: ASPIRIN
  5. CARDIZEM [Concomitant]
     Active Substance: DILTIAZEM HYDROCHLORIDE
  6. SERTRALINE [Concomitant]
     Active Substance: SERTRALINE HYDROCHLORIDE
  7. NYSTATIN-TRIAMCINOLONE OINTMENT [Suspect]
     Active Substance: NYSTATIN\TRIAMCINOLONE
     Indication: HAEMORRHOIDS
     Route: 061
     Dates: start: 20160115, end: 20160121
  8. WARFARIN [Concomitant]
     Active Substance: WARFARIN
  9. TOPROL XL [Concomitant]
     Active Substance: METOPROLOL SUCCINATE
  10. ALTACE [Concomitant]
     Active Substance: RAMIPRIL
  11. NYSTATIN-TRIAMCINOLONE OINTMENT [Suspect]
     Active Substance: NYSTATIN\TRIAMCINOLONE
     Indication: PRURITUS
     Route: 061
     Dates: start: 20160115, end: 20160121
  12. ARIMIDEX [Concomitant]
     Active Substance: ANASTROZOLE
  13. VALIUM [Concomitant]
     Active Substance: DIAZEPAM
  14. PROBIOTICS [Concomitant]
     Active Substance: PROBIOTICS NOS
  15. MUCINEX [Concomitant]
     Active Substance: GUAIFENESIN

REACTIONS (3)
  - Dizziness [None]
  - Blood pressure increased [None]
  - Pruritus [None]

NARRATIVE: CASE EVENT DATE: 20160129
